FAERS Safety Report 7118770-0 (Version None)
Quarter: 2010Q4

REPORT INFORMATION
  Report Type: 
  Country: None (occurrence: None)
  Receive Date: 20101123
  Receipt Date: 20101117
  Transmission Date: 20110411
  Serious: Yes (Hospitalization)
  Sender: FDA-Public Use
  Company Number: DE-ABBOTT-10P-062-0686207-00

PATIENT
  Age: 43 Year
  Sex: Male

DRUGS (10)
  1. ERGENYL TABLETS [Suspect]
     Indication: SCHIZOAFFECTIVE DISORDER
     Route: 048
  2. ZYPREXA [Interacting]
     Indication: BIPOLAR DISORDER
     Route: 048
     Dates: start: 20100427, end: 20100429
  3. ZYPREXA [Interacting]
     Indication: MANIA
     Route: 048
     Dates: start: 20100504, end: 20100505
  4. ZYPREXA [Interacting]
     Route: 048
     Dates: start: 20100506, end: 20100528
  5. ZYPREXA [Interacting]
     Route: 048
     Dates: start: 20100529, end: 20100601
  6. TAVOR [Concomitant]
     Indication: PRODUCT USED FOR UNKNOWN INDICATION
     Dates: start: 20100427, end: 20100503
  7. DIAZEPAM [Concomitant]
     Indication: PRODUCT USED FOR UNKNOWN INDICATION
     Dates: start: 20100504, end: 20100603
  8. HALDOL [Concomitant]
     Indication: PRODUCT USED FOR UNKNOWN INDICATION
     Dates: start: 20100429, end: 20100616
  9. BIPERIDEN HYDROCHLORIDE TAB [Concomitant]
     Indication: PRODUCT USED FOR UNKNOWN INDICATION
     Dates: start: 20100430, end: 20100629
  10. PROTHIPENDYL [Concomitant]
     Indication: PRODUCT USED FOR UNKNOWN INDICATION
     Dates: start: 20100430, end: 20100527

REACTIONS (3)
  - DRUG INTERACTION [None]
  - INCREASED APPETITE [None]
  - WEIGHT INCREASED [None]
